FAERS Safety Report 20645243 (Version 1)
Quarter: 2022Q1

REPORT INFORMATION
  Report Type: Report from Study
  Country: US (occurrence: US)
  Receive Date: 20220328
  Receipt Date: 20220328
  Transmission Date: 20220423
  Serious: No
  Sender: FDA-Public Use
  Company Number: US-NOVARTISTESTPH-NVSC2022US068824

PATIENT
  Sex: Female

DRUGS (1)
  1. MYFORTIC [Suspect]
     Active Substance: MYCOPHENOLATE SODIUM
     Indication: Immunosuppression
     Dosage: UNK
     Route: 065

REACTIONS (7)
  - Memory impairment [Unknown]
  - Confusional state [Unknown]
  - Stress [Unknown]
  - Multimorbidity [Unknown]
  - COVID-19 [Unknown]
  - Drug intolerance [Unknown]
  - Transplant failure [Unknown]
